FAERS Safety Report 7959439-X (Version None)
Quarter: 2011Q4

REPORT INFORMATION
  Report Type: 
  Country: None (occurrence: None)
  Receive Date: 20111206
  Receipt Date: 20111201
  Transmission Date: 20120403
  Serious: No
  Sender: FDA-Public Use
  Company Number: US-PFIZER INC-2011293666

PATIENT
  Age: 86 Year
  Sex: Female

DRUGS (3)
  1. PROCARDIA XL [Suspect]
     Dosage: UNK
  2. DIGOXIN [Concomitant]
     Dosage: UNK
  3. PLAVIX [Concomitant]
     Dosage: UNK

REACTIONS (2)
  - STRESS [None]
  - ANXIETY [None]
